FAERS Safety Report 11744796 (Version 1)
Quarter: 2015Q4

REPORT INFORMATION
  Report Type: Spontaneous
  Country: US (occurrence: None)
  Receive Date: 20151116
  Receipt Date: 20151116
  Transmission Date: 20160304
  Serious: No
  Sender: FDA-Public Use
  Company Number: US-MDT-ADR-2015-02166

PATIENT
  Age: 50 Year
  Sex: Male

DRUGS (2)
  1. BACLOFEN INTRATHECAL - 100.0 MCG/ML [Suspect]
     Active Substance: BACLOFEN
     Indication: PAIN
     Dosage: 20.88 MCG/DAY
  2. DILAUDID [Suspect]
     Active Substance: HYDROMORPHONE HYDROCHLORIDE
     Dosage: 0.8350 MG/DAY

REACTIONS (1)
  - Medical device discomfort [None]
